FAERS Safety Report 5419900-9 (Version None)
Quarter: 2007Q3

REPORT INFORMATION
  Report Type: 
  Country: None (occurrence: None)
  Receive Date: 20070820
  Receipt Date: 20070808
  Transmission Date: 20080115
  Serious: Yes (Hospitalization, Other)
  Sender: FDA-Public Use
  Company Number: US-PFIZER INC-2007018678

PATIENT
  Sex: Male

DRUGS (4)
  1. BEXTRA [Suspect]
     Indication: MUSCULOSKELETAL PAIN
  2. BEXTRA [Suspect]
     Indication: NECK PAIN
  3. BEXTRA [Suspect]
     Indication: ARTHRITIS
  4. BEXTRA [Suspect]
     Indication: NEURITIS

REACTIONS (1)
  - CEREBROVASCULAR ACCIDENT [None]
